FAERS Safety Report 23905984 (Version 1)
Quarter: 2024Q2

REPORT INFORMATION
  Report Type: Report from Study
  Country: PR (occurrence: PR)
  Receive Date: 20240527
  Receipt Date: 20240527
  Transmission Date: 20240716
  Serious: Yes (Other)
  Sender: FDA-Public Use
  Company Number: PR-ABBVIE-5772708

PATIENT
  Sex: Female
  Weight: 104.32 kg

DRUGS (2)
  1. HUMIRA [Suspect]
     Active Substance: ADALIMUMAB
     Indication: Rheumatoid arthritis
     Dosage: FORM STRENGTH: 40 MILLIGRAM?PRODUCT (ADALIMUMAB) - START DATE TEXT: UNKNOWN
     Route: 058
  2. HUMIRA [Suspect]
     Active Substance: ADALIMUMAB
     Dosage: FORM STRENGTH: 40 MILLIGRAM?PRODUCT (ADALIMUMAB) - START DATE TEXT: UNKNOWN
     Route: 058
     Dates: start: 20150228

REACTIONS (8)
  - Bladder disorder [Recovered/Resolved]
  - Uterine leiomyoma [Not Recovered/Not Resolved]
  - Stress [Unknown]
  - Uterine enlargement [Not Recovered/Not Resolved]
  - Haemoglobin decreased [Not Recovered/Not Resolved]
  - Urinary incontinence [Recovered/Resolved]
  - Vaginal haemorrhage [Recovered/Resolved]
  - Unevaluable event [Unknown]

NARRATIVE: CASE EVENT DATE: 20230101
